FAERS Safety Report 9550711 (Version 2)
Quarter: 2014Q2

REPORT INFORMATION
  Report Type: Spontaneous
  Country: US (occurrence: US)
  Receive Date: 20130924
  Receipt Date: 20140402
  Transmission Date: 20141212
  Serious: No
  Sender: FDA-Public Use
  Company Number: US-SANOFI-AVENTIS-2013SA019332

PATIENT
  Age: 53 Year
  Sex: Female

DRUGS (1)
  1. AUBAGIO [Suspect]
     Indication: MULTIPLE SCLEROSIS
     Route: 048
     Dates: start: 201301

REACTIONS (11)
  - Nasopharyngitis [Unknown]
  - Sneezing [Unknown]
  - Fatigue [Unknown]
  - Feeling hot [Unknown]
  - Head discomfort [Unknown]
  - Feeling abnormal [Unknown]
  - Sleep disorder [Unknown]
  - Anxiety [Unknown]
  - Urinary tract infection [Unknown]
  - Sinusitis [Unknown]
  - Alopecia [Not Recovered/Not Resolved]
